FAERS Safety Report 12985406 (Version 1)
Quarter: 2016Q4

REPORT INFORMATION
  Report Type: Spontaneous
  Country: US (occurrence: US)
  Receive Date: 20161130
  Receipt Date: 20161130
  Transmission Date: 20170207
  Serious: Yes (Other)
  Sender: FDA-Public Use
  Company Number: US-ASTRAZENECA-2016SF24160

PATIENT
  Age: 26485 Day
  Sex: Female

DRUGS (14)
  1. TIKOSYN [Suspect]
     Active Substance: DOFETILIDE
     Dosage: TAKE 1 CAP BY MOUTH EVERT 12 HOURS
     Route: 048
  2. ZOFRAN ODT [Concomitant]
     Active Substance: ONDANSETRON HYDROCHLORIDE
     Indication: NAUSEA
     Dosage: TAKE 1 TAB BY MOUTH EVERY 6 HOURS AS NEEDED.
     Route: 048
  3. TOPROL XL [Concomitant]
     Active Substance: METOPROLOL SUCCINATE
     Dosage: TAKE 25 MG BY MOUTH DALLY.
     Route: 048
  4. LANOXIN [Concomitant]
     Active Substance: DIGOXIN
     Dosage: TAKE 1 TAB BY MOUTH EVERY OTHER DAY.
     Route: 048
  5. BUDESONIDE. [Suspect]
     Active Substance: BUDESONIDE
     Route: 055
     Dates: start: 20140826, end: 20140826
  6. MULTLVITAMIN [Concomitant]
     Dosage: TAKE 1 TAB BY MOUTH AFTER THE EVENING MEAL.
     Route: 048
  7. ZOFRAN ODT [Concomitant]
     Active Substance: ONDANSETRON HYDROCHLORIDE
     Indication: VOMITING
     Dosage: TAKE 1 TAB BY MOUTH EVERY 6 HOURS AS NEEDED.
     Route: 048
  8. XARELTO [Concomitant]
     Active Substance: RIVAROXABAN
     Dosage: TAKE 1 TAB BY MOUTH DALLY WITH LHE EVENING MEAT.
     Route: 048
  9. LOTRISONE [Concomitant]
     Active Substance: BETAMETHASONE DIPROPIONATE\CLOTRIMAZOLE
  10. MACRODANTIN [Concomitant]
     Active Substance: NITROFURANTOIN
     Dosage: 100.0MG UNKNOWN
  11. TEMOVATE [Concomitant]
     Active Substance: CLOBETASOL PROPIONATE
     Route: 061
  12. PROTONIX [Suspect]
     Active Substance: PANTOPRAZOLE SODIUM
     Route: 048
  13. TRIMPEX [Concomitant]
     Active Substance: TRIMETHOPRIM
  14. CELEXA [Concomitant]
     Active Substance: CITALOPRAM HYDROBROMIDE
     Indication: DEPRESSION
     Dosage: TAKE 30 MG BY MOUTH DALLY.
     Route: 048

REACTIONS (4)
  - Hypoaesthesia oral [Unknown]
  - Dry mouth [Unknown]
  - Swelling [Unknown]
  - Drug hypersensitivity [Unknown]

NARRATIVE: CASE EVENT DATE: 20140826
